FAERS Safety Report 17875440 (Version 2)
Quarter: 2021Q2

REPORT INFORMATION
  Report Type: Report from Study
  Country: US (occurrence: US)
  Receive Date: 20200609
  Receipt Date: 20210603
  Transmission Date: 20210717
  Serious: Yes (Death)
  Sender: FDA-Public Use
  Company Number: US-PFIZER INC-2020219475

PATIENT

DRUGS (7)
  1. DOXORUBICIN HCL [Suspect]
     Active Substance: DOXORUBICIN HYDROCHLORIDE
     Indication: ACUTE LYMPHOCYTIC LEUKAEMIA RECURRENT
     Dosage: 60 MG/M2 IV IN WEEK 1
     Route: 042
  2. METHOTREXATE SODIUM. [Suspect]
     Active Substance: METHOTREXATE SODIUM
     Indication: ACUTE LYMPHOCYTIC LEUKAEMIA RECURRENT
     Dosage: DAYS 1, 8, 15, 22, 29
     Route: 037
  3. VINCRISTINE SULFATE. [Suspect]
     Active Substance: VINCRISTINE SULFATE
     Indication: ACUTE LYMPHOCYTIC LEUKAEMIA RECURRENT
     Dosage: UNKNOWN DOSE (ARM A OR B), INTRAVENOUS (IV) IN WEEKS 1?4
     Route: 042
  4. CYTARABINE. [Suspect]
     Active Substance: CYTARABINE
     Indication: ACUTE LYMPHOCYTIC LEUKAEMIA RECURRENT
     Dosage: DAYS 1, 8, 15, 22, 29
     Route: 037
  5. HYDROCORTISONE. [Suspect]
     Active Substance: HYDROCORTISONE
     Indication: ACUTE LYMPHOCYTIC LEUKAEMIA RECURRENT
     Dosage: DAYS 1, 8, 15, 22, 29
     Route: 037
  6. PREDNISONE. [Suspect]
     Active Substance: PREDNISONE
     Indication: ACUTE LYMPHOCYTIC LEUKAEMIA RECURRENT
     Dosage: 40 MG/M2/DAY ORAL (PO) DIVIDED THREE TIMES DAILY (TID) FROM WEEK 1 TO WEEK 4 FOR 28 DAYS
     Route: 048
  7. PEGASPARGASE [Suspect]
     Active Substance: PEGASPARGASE
     Indication: ACUTE LYMPHOCYTIC LEUKAEMIA RECURRENT
     Dosage: 2500 UNITS/M2 INTRAMUSCULAR (IM) IN WEEKS 1?4
     Route: 030

REACTIONS (1)
  - Staphylococcal infection [Fatal]
